FAERS Safety Report 9419200 (Version 2)
Quarter: 2013Q3

REPORT INFORMATION
  Report Type: Spontaneous
  Country: IN (occurrence: IN)
  Receive Date: 20130723
  Receipt Date: 20130807
  Transmission Date: 20140515
  Serious: Yes (Other)
  Sender: FDA-Public Use
  Company Number: AUR-APL-2013-05979

PATIENT
  Age: 36 Year
  Sex: Female

DRUGS (2)
  1. FLUOXETINE (FLUOXETINE) [Suspect]
     Indication: BACK PAIN
  2. ULTRACET [Suspect]
     Indication: BACK PAIN

REACTIONS (10)
  - Headache [None]
  - Nausea [None]
  - Photophobia [None]
  - Phonophobia [None]
  - Serotonin syndrome [None]
  - Toxicity to various agents [None]
  - Dysarthria [None]
  - Hyperhidrosis [None]
  - Agitation [None]
  - Hyperthermia [None]
